FAERS Safety Report 16364983 (Version 1)
Quarter: 2019Q2

REPORT INFORMATION
  Report Type: Spontaneous
  Country: US (occurrence: US)
  Receive Date: 20190529
  Receipt Date: 20190529
  Transmission Date: 20190711
  Serious: Yes (Disabling, Other)
  Sender: FDA-Public Use
  Company Number: US-PFIZER INC-2019222651

PATIENT
  Sex: Male
  Weight: 124.74 kg

DRUGS (1)
  1. DILANTIN [Suspect]
     Active Substance: PHENYTOIN
     Dosage: 300 MG, 2X/DAY
     Route: 048
     Dates: start: 1993

REACTIONS (4)
  - Road traffic accident [Unknown]
  - Head injury [Unknown]
  - Coma [Unknown]
  - Memory impairment [Unknown]
